FAERS Safety Report 10529409 (Version 1)
Quarter: 2014Q4

REPORT INFORMATION
  Report Type: Spontaneous
  Country: CN (occurrence: CN)
  Receive Date: 20141021
  Receipt Date: 20141021
  Transmission Date: 20150528
  Serious: Yes (Other)
  Sender: FDA-Public Use
  Company Number: CN-RANBAXY-2014RR-86868

PATIENT
  Sex: Female

DRUGS (6)
  1. CHLORPROMAZINE [Suspect]
     Active Substance: CHLORPROMAZINE
     Indication: SCHIZOPHRENIA, PARANOID TYPE
     Dosage: UNK
     Route: 065
  2. RISPERIDONE. [Suspect]
     Active Substance: RISPERIDONE
     Indication: SCHIZOPHRENIA, PARANOID TYPE
     Dosage: UNK
     Route: 065
  3. HALOPERIDOL. [Suspect]
     Active Substance: HALOPERIDOL
     Indication: SCHIZOPHRENIA, PARANOID TYPE
     Dosage: UNK
     Route: 065
  4. THIORIDAZINE [Suspect]
     Active Substance: THIORIDAZINE
     Indication: SCHIZOPHRENIA, PARANOID TYPE
     Dosage: STARTED AT 200 MG, THEN INCREASED TO 450 MG
     Route: 065
     Dates: start: 200008, end: 200009
  5. OLANZAPINE. [Suspect]
     Active Substance: OLANZAPINE
     Indication: SCHIZOPHRENIA, PARANOID TYPE
     Dosage: STARTED AT 15 MG/DAY, THEN INCREASED UP TO 30 MG/DAY AND THEN DECREASED GRADUALLY TO 5 MG/DAY
     Route: 065
     Dates: start: 200012, end: 200505
  6. CLOZAPINE. [Suspect]
     Active Substance: CLOZAPINE
     Indication: SCHIZOPHRENIA, PARANOID TYPE
     Dosage: STARTED AT 150 MG/DAY, INCREASED UP TO 500 MG/DAY THEN DECREASED GRADUALLY TO 25 MG/DAY
     Route: 065
     Dates: start: 1996, end: 2012

REACTIONS (3)
  - Seizure [Recovered/Resolved]
  - Amnesia [Recovering/Resolving]
  - Diabetes mellitus [Not Recovered/Not Resolved]

NARRATIVE: CASE EVENT DATE: 200007
